FAERS Safety Report 4412904-4 (Version None)
Quarter: 2004Q3

REPORT INFORMATION
  Report Type: 
  Country: None (occurrence: None)
  Receive Date: 20040730
  Receipt Date: 20040730
  Transmission Date: 20050211
  Serious: Yes (Hospitalization)
  Sender: FDA-Public Use
  Company Number: None

PATIENT
  Sex: Male

DRUGS (3)
  1. TAXOL [Suspect]
     Indication: PANCREATIC CARCINOMA
     Dosage: 40 MG /M2 IV Q WK X 6
     Route: 042
     Dates: start: 20040209, end: 20040315
  2. GEMZAR [Suspect]
     Indication: PANCREATIC CARCINOMA
     Dosage: 75 MG /M2 IV Q WK
     Route: 042
     Dates: start: 20040209, end: 20040315
  3. TARCEVA [Suspect]
     Indication: PANCREATIC CARCINOMA
     Dosage: 75 MG /D PO
     Route: 048
     Dates: start: 20040209, end: 20040412

REACTIONS (1)
  - DEEP VEIN THROMBOSIS [None]
